FAERS Safety Report 9606810 (Version 1)
Quarter: 2013Q4

REPORT INFORMATION
  Report Type: Spontaneous
  Country: US (occurrence: US)
  Receive Date: 20131008
  Receipt Date: 20131008
  Transmission Date: 20140711
  Serious: No
  Sender: FDA-Public Use
  Company Number: US-AMGEN-USASP2013066760

PATIENT
  Age: 71 Year
  Sex: Female

DRUGS (3)
  1. PROLIA [Suspect]
     Indication: OSTEOPOROSIS POSTMENOPAUSAL
     Dosage: UNK
     Route: 065
     Dates: start: 201308
  2. CALCIUM + VITAMIN D                /01483701/ [Concomitant]
     Dosage: UNK
     Route: 065
  3. MULTIVITAMIN                       /00097801/ [Concomitant]
     Dosage: UNK
     Route: 065

REACTIONS (6)
  - Asthenia [Unknown]
  - Fatigue [Unknown]
  - Apathy [Unknown]
  - Depressed mood [Unknown]
  - Ocular hyperaemia [Recovered/Resolved]
  - Eye pruritus [Recovered/Resolved]
